FAERS Safety Report 21036851 (Version 1)
Quarter: 2022Q3

REPORT INFORMATION
  Report Type: Spontaneous
  Country: PT (occurrence: PT)
  Receive Date: 20220702
  Receipt Date: 20220702
  Transmission Date: 20221026
  Serious: Yes (Life-Threatening, Other)
  Sender: FDA-Public Use
  Company Number: None

PATIENT
  Age: 44 Year
  Sex: Male

DRUGS (4)
  1. CISPLATIN [Suspect]
     Active Substance: CISPLATIN
     Indication: Testis cancer
     Dosage: 20MG/M2
     Route: 042
     Dates: start: 20220404
  2. BLEOMYCIN [Suspect]
     Active Substance: BLEOMYCIN SULFATE
     Indication: Testis cancer
     Route: 042
     Dates: start: 20220404
  3. ETOPOSIDE [Suspect]
     Active Substance: ETOPOSIDE
     Indication: Testis cancer
     Dosage: 100MG/M2 , STRENGTH- 100 MG/5 ML
     Route: 042
     Dates: start: 20220404
  4. ONDANSETRON [Concomitant]
     Active Substance: ONDANSETRON
     Dosage: STRENGTH 8 MG
     Route: 048

REACTIONS (2)
  - Neutropenia [Unknown]
  - Rash papular [Unknown]

NARRATIVE: CASE EVENT DATE: 20220422
